FAERS Safety Report 24556221 (Version 6)
Quarter: 2025Q1

REPORT INFORMATION
  Report Type: Report from Study
  Country: CA (occurrence: CA)
  Receive Date: 20241028
  Receipt Date: 20250313
  Transmission Date: 20250409
  Serious: Yes (Other)
  Sender: TAKEDA
  Company Number: CA-TAKEDA-2024TUS032736

PATIENT
  Sex: Male

DRUGS (2)
  1. VEDOLIZUMAB [Suspect]
     Active Substance: VEDOLIZUMAB
     Indication: Colitis ulcerative
  2. HUMIRA [Concomitant]
     Active Substance: ADALIMUMAB
     Dosage: 80 MILLIGRAM, Q2WEEKS
     Dates: start: 202208

REACTIONS (5)
  - Rectal haemorrhage [Unknown]
  - Haematochezia [Recovering/Resolving]
  - Influenza like illness [Unknown]
  - Drug level below therapeutic [Unknown]
  - Frequent bowel movements [Recovering/Resolving]
